FAERS Safety Report 4409897-2 (Version None)
Quarter: 2004Q3

REPORT INFORMATION
  Report Type: 
  Country: None (occurrence: None)
  Receive Date: 20040728
  Receipt Date: 20040719
  Transmission Date: 20050211
  Serious: Yes (Disabling)
  Sender: FDA-Public Use
  Company Number: PHBS2004AU09770

PATIENT
  Age: 59 Year
  Sex: Female

DRUGS (10)
  1. FORMOTEROL [Suspect]
     Indication: ASTHMA
  2. TERBUTALINE [Concomitant]
  3. FLUTICASONE PROPIONATE [Concomitant]
  4. PREDNISONE [Concomitant]
     Dosage: 1.5 MG/ DAY
  5. ALLOPURINOL [Concomitant]
  6. PANTOPRAZOLE [Concomitant]
  7. SLOW-K [Concomitant]
  8. CALTRATE [Concomitant]
  9. BI-QUINATE [Concomitant]
  10. FRUSEMIDE [Concomitant]

REACTIONS (11)
  - BIOPSY MUSCLE ABNORMAL [None]
  - BLOOD CREATINE PHOSPHOKINASE INCREASED [None]
  - C-REACTIVE PROTEIN INCREASED [None]
  - DYSSTASIA [None]
  - MITOCHONDRIAL MYOPATHY [None]
  - MUSCLE ATROPHY [None]
  - MUSCLE CRAMP [None]
  - MUSCULAR WEAKNESS [None]
  - MYALGIA [None]
  - MYOPATHY [None]
  - RED BLOOD CELL SEDIMENTATION RATE INCREASED [None]
